FAERS Safety Report 6633316-9 (Version None)
Quarter: 2010Q1

REPORT INFORMATION
  Report Type: 
  Country: None (occurrence: None)
  Receive Date: 20100312
  Receipt Date: 20100303
  Transmission Date: 20100710
  Serious: Yes (Other)
  Sender: FDA-Public Use
  Company Number: JP-PFIZER INC-2010025266

PATIENT
  Age: 74 Year
  Sex: Female

DRUGS (2)
  1. SALAZOPYRIN [Suspect]
     Indication: CROHN'S DISEASE
     Dosage: UNK
  2. MESALAZINE [Concomitant]
     Indication: CROHN'S DISEASE

REACTIONS (1)
  - FAECES DISCOLOURED [None]
